FAERS Safety Report 6275888-2 (Version None)
Quarter: 2009Q3

REPORT INFORMATION
  Report Type: 
  Country: None (occurrence: None)
  Receive Date: 20090720
  Receipt Date: 20090707
  Transmission Date: 20100115
  Serious: Yes (Hospitalization)
  Sender: FDA-Public Use
  Company Number: SPV1-2009-01128

PATIENT
  Age: 3 Year
  Sex: Male

DRUGS (1)
  1. ELAPRASE [Suspect]
     Indication: MUCOPOLYSACCHARIDOSIS II
     Dosage: 10 MG, 1X/WEEK, IV DRIP
     Route: 042
     Dates: start: 20090205

REACTIONS (5)
  - CYST [None]
  - INTRACRANIAL HYPOTENSION [None]
  - PYREXIA [None]
  - SPINAL DISORDER [None]
  - VOMITING [None]
